FAERS Safety Report 16936789 (Version 1)
Quarter: 2019Q4

REPORT INFORMATION
  Report Type: Spontaneous
  Country: CN (occurrence: CN)
  Receive Date: 20191018
  Receipt Date: 20191018
  Transmission Date: 20200122
  Serious: Yes (Other)
  Sender: FDA-Public Use
  Company Number: CN-009507513-1910CHN009057

PATIENT
  Age: 84 Year
  Sex: Female

DRUGS (1)
  1. TIENAM [Suspect]
     Active Substance: CILASTATIN SODIUM\IMIPENEM
     Indication: URINARY TRACT INFECTION
     Dosage: 1 GRAM, EVERY 12 HOURS
     Dates: start: 20180125, end: 2018

REACTIONS (3)
  - Vomiting [Recovered/Resolved]
  - Overdose [Unknown]
  - Epilepsy [Recovered/Resolved]

NARRATIVE: CASE EVENT DATE: 20180125
